FAERS Safety Report 23219894 (Version 2)
Quarter: 2023Q4

REPORT INFORMATION
  Report Type: Spontaneous
  Country: GB (occurrence: GB)
  Receive Date: 20231122
  Receipt Date: 20231207
  Transmission Date: 20240110
  Serious: Yes (Hospitalization, Other)
  Sender: FDA-Public Use
  Company Number: GB-SA-SAC20231106001075

PATIENT
  Age: 89 Year
  Sex: Male

DRUGS (1)
  1. SUTIMLIMAB [Suspect]
     Active Substance: SUTIMLIMAB
     Indication: Cold type haemolytic anaemia
     Dosage: 6.5 G
     Route: 042

REACTIONS (9)
  - Lower respiratory tract infection [Unknown]
  - Pleural effusion [Unknown]
  - Pneumonia [Unknown]
  - Dyspnoea [Unknown]
  - Wheezing [Unknown]
  - Hypervolaemia [Unknown]
  - Oxygen saturation decreased [Unknown]
  - Cardiomegaly [Unknown]
  - Peripheral swelling [Unknown]

NARRATIVE: CASE EVENT DATE: 20230201
